FAERS Safety Report 15190366 (Version 1)
Quarter: 2018Q3

REPORT INFORMATION
  Report Type: Spontaneous
  Country: GB (occurrence: GB)
  Receive Date: 20180724
  Receipt Date: 20180724
  Transmission Date: 20181010
  Serious: Yes (Disabling)
  Sender: FDA-Public Use
  Company Number: GB-US WORLDMEDS, LLC-E2B_00002763

PATIENT
  Age: 78 Year
  Sex: Female
  Weight: 57 kg

DRUGS (1)
  1. SAFINAMIDE [Suspect]
     Active Substance: SAFINAMIDE
     Indication: PRODUCT USED FOR UNKNOWN INDICATION
     Route: 065
     Dates: start: 20180515

REACTIONS (1)
  - Oral pain [Recovered/Resolved]

NARRATIVE: CASE EVENT DATE: 20180515
